FAERS Safety Report 13912961 (Version 4)
Quarter: 2018Q2

REPORT INFORMATION
  Report Type: Report from Study
  Country: US (occurrence: US)
  Receive Date: 20170828
  Receipt Date: 20180511
  Transmission Date: 20180711
  Serious: Yes (Death, Hospitalization)
  Sender: FDA-Public Use
  Company Number: US-ACTELION-A-NJ2017-158615

PATIENT
  Age: 55 Year
  Sex: Female
  Weight: 39.91 kg

DRUGS (1)
  1. TRACLEER [Suspect]
     Active Substance: BOSENTAN
     Indication: PULMONARY HYPERTENSION
     Dosage: 125 MG, BID
     Route: 048

REACTIONS (5)
  - Deafness [Unknown]
  - Death [Fatal]
  - Cerebrovascular accident [Unknown]
  - Tracheostomy [Unknown]
  - Seizure [Unknown]
